FAERS Safety Report 10153870 (Version 3)
Quarter: 2014Q2

REPORT INFORMATION
  Report Type: Spontaneous
  Country: JP (occurrence: JP)
  Receive Date: 20140506
  Receipt Date: 20140630
  Transmission Date: 20141212
  Serious: Yes (Other)
  Sender: FDA-Public Use
  Company Number: JP-BRISTOL-MYERS SQUIBB COMPANY-20695896

PATIENT
  Age: 88 Year
  Sex: Male

DRUGS (15)
  1. ELIQUIS [Suspect]
     Indication: ATRIAL FIBRILLATION
     Dosage: INTER ON 02JUN14
     Route: 048
     Dates: start: 20140401
  2. ARTIST [Concomitant]
     Dosage: TAB
     Route: 048
  3. SIGMART [Concomitant]
     Dosage: TAB
     Route: 048
  4. VASOLAN [Concomitant]
     Dosage: TAB
     Route: 048
  5. BLOPRESS [Concomitant]
     Dosage: TAB
     Route: 048
  6. TAKEPRON [Concomitant]
     Dosage: TAB
     Route: 048
  7. MEMANTINE HCL [Concomitant]
     Dosage: TAB
     Route: 048
  8. FERROMIA [Concomitant]
     Dosage: TABS
     Route: 048
  9. LASIX [Concomitant]
     Dosage: TABS
     Route: 048
  10. ALDACTONE [Concomitant]
     Route: 048
  11. LENDORMIN [Concomitant]
     Dosage: TABS
     Route: 048
  12. ZYLORIC [Concomitant]
     Dosage: TABS
     Route: 048
  13. MAGLAX [Concomitant]
     Dosage: TABS
     Route: 048
  14. ENSURE [Concomitant]
     Dosage: 1DF:2CANS ,ENSURE LIQUID
  15. ARICEPT [Concomitant]
     Dosage: ARICEPT D TABS
     Route: 048

REACTIONS (2)
  - Head injury [Unknown]
  - Subdural haematoma [Recovered/Resolved]
